FAERS Safety Report 6090381-8 (Version None)
Quarter: 2009Q1

REPORT INFORMATION
  Report Type: 
  Country: None (occurrence: None)
  Receive Date: 20090220
  Receipt Date: 20090204
  Transmission Date: 20090719
  Serious: Yes (Other)
  Sender: FDA-Public Use
  Company Number: 000376

PATIENT
  Age: 74 Year
  Sex: Female

DRUGS (9)
  1. GLYCERYL TRINITRATE (GLYCERYL TRINITRATE) [Suspect]
     Dosage: (INTRAVENOUS DRIP)
     Route: 041
  2. PROSTAGLANDIN E1 (PROSTAGLANDIN E1) [Suspect]
     Dosage: (INTRAVENOUS DRIP)
     Route: 041
  3. DEXMEDETOMIDINE (DEXMEDETOMIDINE) [Suspect]
     Dosage: (INTRAVENOUS DRIP)
     Route: 041
  4. DOXAZOSIN (DOXAZOSIN) [Suspect]
  5. FENTANYL-100 [Suspect]
     Indication: ANAESTHESIA
     Dosage: (INTRAVENOUS (NOT OTHERWISE SPECIFIED))
     Route: 042
  6. MIDAZOLAM HCL [Suspect]
     Indication: ANAESTHESIA
     Dosage: (INTRAVENOUS (NOT OTHERWISE SPECIFIED))
     Route: 042
  7. VECURONIUM BROMIDE [Suspect]
     Indication: ANAESTHESIA
     Dosage: (INTRAVENOUS (NOT OTHERWISE SPECIFIED))
     Route: 042
  8. SEVOFLURANE [Suspect]
     Indication: ANAESTHESIA
     Dosage: (RESPIRATORY (INHALATION))
     Route: 055
  9. REMIFENTANIL (REMIFENTANIL) [Suspect]
     Indication: ANAESTHESIA

REACTIONS (3)
  - BLOOD GLUCOSE INCREASED [None]
  - BLOOD PRESSURE INCREASED [None]
  - HEART RATE INCREASED [None]
